FAERS Safety Report 9621041 (Version 1)
Quarter: 2013Q4

REPORT INFORMATION
  Report Type: Spontaneous
  Country: KP (occurrence: KR)
  Receive Date: 20131015
  Receipt Date: 20131015
  Transmission Date: 20140711
  Serious: Yes (Other)
  Sender: FDA-Public Use
  Company Number: PHHY2013KR112428

PATIENT
  Age: 67 Year
  Sex: Female

DRUGS (3)
  1. NILOTINIB [Suspect]
     Indication: CHRONIC MYELOID LEUKAEMIA
     Dosage: 400 MG, BID
     Dates: start: 200809
  2. NILOTINIB [Suspect]
     Dosage: 200 MG, PER DAY
     Dates: start: 201110
  3. NILOTINIB [Suspect]
     Dosage: 400 MG, BID

REACTIONS (8)
  - Interstitial lung disease [Unknown]
  - Cough [Recovering/Resolving]
  - Rales [Unknown]
  - Lung consolidation [Unknown]
  - Pleural effusion [Unknown]
  - Dyspnoea exertional [Recovering/Resolving]
  - Organising pneumonia [Unknown]
  - Lymphocytic infiltration [Unknown]
